FAERS Safety Report 9124558 (Version 1)
Quarter: 2013Q1

REPORT INFORMATION
  Report Type: Report from Study
  Country: JP (occurrence: JP)
  Receive Date: 20130227
  Receipt Date: 20130227
  Transmission Date: 20140127
  Serious: Yes (Hospitalization)
  Sender: FDA-Public Use
  Company Number: JP-ACTELION-A-CH2011-55994

PATIENT
  Age: 81 Year
  Sex: Male
  Weight: 47 kg

DRUGS (12)
  1. TRACLEER [Suspect]
     Indication: PULMONARY ARTERIAL HYPERTENSION
     Dosage: 125 MG, BID
     Route: 048
     Dates: start: 20110413
  2. TRACLEER [Suspect]
     Dosage: 62.5 MG, BID
     Route: 048
     Dates: start: 20110308, end: 20110412
  3. BERAPROST SODIUM [Concomitant]
  4. PREDNISOLONE [Concomitant]
  5. CAMOSTAT MESILATE [Concomitant]
  6. URSODEOXYCHOLIC ACID [Concomitant]
  7. PIRFENIDONE [Concomitant]
  8. ISOSORBID DINITRATE [Concomitant]
  9. MIDODRINE HYDROCHLORIDE [Concomitant]
  10. ETHYL ICOSAPENTATE [Concomitant]
  11. BROTIZOLAM [Concomitant]
  12. OXYGEN [Concomitant]

REACTIONS (5)
  - Pneumonia [Recovered/Resolved]
  - Liver function test abnormal [Recovered/Resolved]
  - Alanine aminotransferase increased [Recovered/Resolved]
  - Blood alkaline phosphatase increased [Recovered/Resolved]
  - Gamma-glutamyltransferase increased [Recovered/Resolved]
